FAERS Safety Report 6517929-0 (Version None)
Quarter: 2009Q4

REPORT INFORMATION
  Report Type: 
  Country: None (occurrence: None)
  Receive Date: 20091223
  Receipt Date: 20091223
  Transmission Date: 20100525
  Serious: Yes (Life-Threatening)
  Sender: FDA-Public Use
  Company Number: None

PATIENT
  Sex: Female
  Weight: 56.2 kg

DRUGS (1)
  1. HEPARIN [Suspect]
     Indication: ANTICOAGULANT THERAPY
     Dosage: 5,000 UNITS ONCE IV BOLUS
     Route: 040
     Dates: start: 20091221, end: 20091221

REACTIONS (1)
  - NO ADVERSE EVENT [None]
